FAERS Safety Report 8918507 (Version 1)
Quarter: 2012Q4

REPORT INFORMATION
  Report Type: 
  Country: US (occurrence: US)
  Receive Date: 20121120
  Receipt Date: 20121120
  Transmission Date: 20130627
  Serious: Yes (Hospitalization, Other)
  Sender: FDA-Public Use
  Company Number: US-ELI_LILLY_AND_COMPANY-US201211003249

PATIENT
  Sex: Male
  Weight: 84.35 kg

DRUGS (9)
  1. BYDUREON [Suspect]
     Indication: INSULIN-REQUIRING TYPE 2 DIABETES MELLITUS
     Dosage: 2 mg, weekly (1/W)
     Route: 058
     Dates: start: 201204
  2. METFORMIN ER [Concomitant]
     Indication: INSULIN-REQUIRING TYPE 2 DIABETES MELLITUS
     Dosage: 500 mg, bid
     Route: 048
     Dates: start: 201106
  3. LEVEMIR [Concomitant]
     Indication: INSULIN-REQUIRING TYPE 2 DIABETES MELLITUS
     Dosage: 1 DF, qd
     Route: 058
     Dates: start: 201201, end: 201204
  4. LEVEMIR [Concomitant]
     Dosage: 1 DF, bid
     Route: 058
     Dates: start: 201204
  5. JANUVIA [Concomitant]
     Indication: INSULIN-REQUIRING TYPE 2 DIABETES MELLITUS
     Dosage: UNK
     Route: 048
     Dates: end: 201204
  6. GLIMEPIRIDE [Concomitant]
     Indication: INSULIN-REQUIRING TYPE 2 DIABETES MELLITUS
     Dosage: UNK
     Route: 048
     Dates: end: 201204
  7. METOPROLOL [Concomitant]
     Indication: CARDIAC DISORDER
     Dosage: 0.5 DF, qd
     Route: 048
  8. LIPITOR [Concomitant]
     Indication: BLOOD CHOLESTEROL
     Dosage: UNK
     Route: 048
  9. DIOVAN [Concomitant]
     Indication: CARDIAC DISORDER
     Dosage: 12.5 mg, each evening
     Route: 048

REACTIONS (5)
  - Pain in extremity [Recovering/Resolving]
  - Constipation [Recovering/Resolving]
  - Weight decreased [Unknown]
  - Injection site nodule [Recovering/Resolving]
  - Off label use [Not Recovered/Not Resolved]
